FAERS Safety Report 19670411 (Version 1)
Quarter: 2021Q3

REPORT INFORMATION
  Report Type: Spontaneous
  Country: US (occurrence: US)
  Receive Date: 20210806
  Receipt Date: 20210806
  Transmission Date: 20211014
  Serious: Yes (Hospitalization)
  Sender: FDA-Public Use
  Company Number: US-SAOL THERAPEUTICS-2021SAO00002

PATIENT
  Age: 30 Year
  Sex: Male

DRUGS (3)
  1. LIORESAL [Suspect]
     Active Substance: BACLOFEN
     Dosage: 900 ?G, \DAY
     Route: 037
     Dates: end: 20201231
  2. LIORESAL [Suspect]
     Active Substance: BACLOFEN
     Dosage: 100 ?G, \DAY
     Route: 037
     Dates: start: 20201231
  3. LIORESAL [Suspect]
     Active Substance: BACLOFEN
     Dosage: 130 ?G, \DAY; AS OF 02?JAN?2021
     Route: 037

REACTIONS (2)
  - Complication associated with device [Recovered/Resolved]
  - Drug withdrawal syndrome [Not Recovered/Not Resolved]

NARRATIVE: CASE EVENT DATE: 20201231
